FAERS Safety Report 8313768-9 (Version None)
Quarter: 2012Q2

REPORT INFORMATION
  Report Type: 
  Country: None (occurrence: None)
  Receive Date: 20120426
  Receipt Date: 20110808
  Transmission Date: 20120825
  Serious: Yes (Other)
  Sender: FDA-Public Use
  Company Number: US-TEVA-US020817

PATIENT
  Sex: Female
  Weight: 77 kg

DRUGS (7)
  1. METHADONE HCL [Concomitant]
     Indication: ARTHRITIS
     Dosage: 120 MILLIGRAM;
     Route: 048
     Dates: start: 19990101
  2. XANAX [Concomitant]
     Indication: ANXIETY DISORDER
     Dosage: 3 MILLIGRAM;
     Route: 048
     Dates: start: 19970101
  3. PROVIGIL [Suspect]
     Indication: SOMNOLENCE
     Dosage: 200 MILLIGRAM;
     Route: 048
     Dates: start: 20030101, end: 20050101
  4. CELEBREX [Concomitant]
     Indication: RHEUMATOID ARTHRITIS
     Route: 048
     Dates: start: 19990101
  5. PROVIGIL [Suspect]
     Dosage: 300 MILLIGRAM;
     Route: 048
     Dates: start: 20050101
  6. TRIAVIL [Concomitant]
     Indication: DEPRESSION
     Dosage: 4/10MG 2 TABLETS BID
     Route: 048
     Dates: start: 19970101
  7. LEXAPRO [Concomitant]
     Indication: DEPRESSION
     Dosage: 30 MILLIGRAM;
     Route: 048
     Dates: start: 20020101

REACTIONS (6)
  - PSYCHOMOTOR HYPERACTIVITY [None]
  - NAUSEA [None]
  - LOGORRHOEA [None]
  - INSOMNIA [None]
  - ANXIETY [None]
  - MANIA [None]
